FAERS Safety Report 24618349 (Version 1)
Quarter: 2024Q4

REPORT INFORMATION
  Report Type: Spontaneous
  Country: US (occurrence: None)
  Receive Date: 20241113
  Receipt Date: 20241113
  Transmission Date: 20250115
  Serious: Yes (Hospitalization)
  Sender: Public
  Company Number: None

PATIENT
  Age: 73 Year
  Sex: Male
  Weight: 65 kg

DRUGS (1)
  1. EMPAGLIFLOZIN [Suspect]
     Active Substance: EMPAGLIFLOZIN
     Indication: Diabetes mellitus
     Dosage: FREQUENCY : DAILY;?
     Route: 048
     Dates: start: 20240612, end: 20240819

REACTIONS (6)
  - Urinary tract infection [None]
  - Dysuria [None]
  - Pollakiuria [None]
  - Urine abnormality [None]
  - Device related infection [None]
  - Therapy cessation [None]

NARRATIVE: CASE EVENT DATE: 20240819
